FAERS Safety Report 4284450-2 (Version None)
Quarter: 2004Q1

REPORT INFORMATION
  Report Type: 
  Country: None (occurrence: None)
  Receive Date: 20040130
  Receipt Date: 20030602
  Transmission Date: 20041129
  Serious: Yes (Hospitalization)
  Sender: FDA-Public Use
  Company Number: 2003162919FR

PATIENT
  Age: 68 Year
  Sex: Female
  Weight: 72 kg

DRUGS (6)
  1. CELEBREX [Suspect]
     Indication: RHEUMATOID ARTHRITIS
     Dosage: ORAL
     Route: 048
     Dates: start: 20021201, end: 20030226
  2. PLAQUENIL [Suspect]
     Dosage: 1 DF, QD, ORAL
     Route: 048
     Dates: start: 20030120, end: 20030206
  3. PREDNISONE [Suspect]
     Indication: RHEUMATOID ARTHRITIS
     Dosage: 4 MG QD ORAL
     Route: 048
  4. OMEPRAZOLE [Suspect]
     Dosage: 1 DF QD ORAL
     Route: 048
  5. LEVOTHYROXINE (LEVOTHYROXINE SODIUM) [Suspect]
     Dosage: 100 UG, QD ORAL
     Route: 048
  6. LAMALINE (BELLADONNA EXTRACT) [Suspect]
     Dosage: 3 DF QD ORAL
     Route: 048

REACTIONS (2)
  - ACUTE GENERALISED EXANTHEMATOUS PUSTULOSIS [None]
  - RASH ERYTHEMATOUS [None]
